FAERS Safety Report 23702510 (Version 3)
Quarter: 2024Q2

REPORT INFORMATION
  Report Type: Report from Study
  Country: US (occurrence: US)
  Receive Date: 20240403
  Receipt Date: 20240412
  Transmission Date: 20240715
  Serious: No
  Sender: FDA-Public Use
  Company Number: US-SANDOZ-SDZ2024US035053

PATIENT
  Sex: Male

DRUGS (4)
  1. OMNITROPE [Suspect]
     Active Substance: SOMATROPIN
     Indication: Short stature
     Dosage: 0.47 ML, QD
     Route: 058
     Dates: start: 20240401
  2. OMNITROPE [Suspect]
     Active Substance: SOMATROPIN
     Indication: Short stature
     Dosage: 0.47 ML, QD
     Route: 058
     Dates: start: 20240401
  3. OMNITROPE [Suspect]
     Active Substance: SOMATROPIN
     Dosage: 0.47 ML 2 DOSE EVERY N/A N/A
     Route: 058
     Dates: start: 20240401
  4. OMNITROPE [Suspect]
     Active Substance: SOMATROPIN
     Dosage: 0.47 ML 2 DOSE EVERY N/A N/A
     Route: 058
     Dates: start: 20240401

REACTIONS (2)
  - Injection site pain [Unknown]
  - Injection site reaction [Unknown]
